FAERS Safety Report 17528259 (Version 3)
Quarter: 2020Q2

REPORT INFORMATION
  Report Type: Spontaneous
  Country: JP (occurrence: JP)
  Receive Date: 20200311
  Receipt Date: 20200406
  Transmission Date: 20200713
  Serious: Yes (Life-Threatening)
  Sender: FDA-Public Use
  Company Number: JP-DSJP-DSJ-2020-107912AA

PATIENT

DRUGS (4)
  1. SEPAMIT-R [Concomitant]
     Active Substance: NIFEDIPINE
     Indication: HYPERTENSION
     Dosage: 40 MG, BID
     Route: 045
     Dates: start: 20190903
  2. OLMESARTAN OD TABLETS ?DSEP? [Suspect]
     Active Substance: OLMESARTAN MEDOXOMIL
     Indication: HYPERTENSION
     Dosage: 10 MG, QD
     Route: 045
     Dates: start: 20190905, end: 20190905
  3. NICARDIPINE HYDROCHLORIDE. [Concomitant]
     Active Substance: NICARDIPINE HYDROCHLORIDE
     Indication: HYPERTENSION
     Dosage: UNK, CONTINUOUS ADMINISTRATION (WITH FLUCTUATIONS)
     Route: 041
  4. DOXAZOSIN MESILATE [Concomitant]
     Active Substance: DOXAZOSIN MESYLATE
     Indication: HYPERTENSION
     Dosage: 2 MG, BID
     Route: 045
     Dates: start: 20190904

REACTIONS (1)
  - Blood pressure decreased [Recovered/Resolved with Sequelae]

NARRATIVE: CASE EVENT DATE: 20190905
